FAERS Safety Report 5477234-0 (Version None)
Quarter: 2007Q4

REPORT INFORMATION
  Report Type: 
  Country: None (occurrence: None)
  Receive Date: 20071004
  Receipt Date: 20070927
  Transmission Date: 20080405
  Serious: Yes (Hospitalization)
  Sender: FDA-Public Use
  Company Number: US-ELI_LILLY_AND_COMPANY-US200709006942

PATIENT
  Sex: Male

DRUGS (12)
  1. BYETTA [Suspect]
     Indication: TYPE 2 DIABETES MELLITUS
     Dosage: 10 UG, 2/D
     Route: 058
     Dates: start: 20051101
  2. BYETTA [Suspect]
     Dosage: 10 UG, 2/D
     Route: 058
     Dates: start: 20061001
  3. BYETTA [Suspect]
     Dosage: 5 UG, 2/D
     Route: 058
     Dates: start: 20070901
  4. LANTUS [Concomitant]
     Dosage: 44 U, EACH EVENING
     Route: 058
  5. COZAAR [Concomitant]
     Dosage: 100 MG, UNKNOWN
  6. TRICOR [Concomitant]
     Dosage: 145 MG, UNK
  7. TOPROL-XL [Concomitant]
     Dosage: 100 MG, UNK
  8. ZOLOFT [Concomitant]
     Dosage: 50 MG, UNKNOWN
  9. PREVACID [Concomitant]
     Dosage: 2 D/F, DAILY (1/D)
  10. LIPITOR [Concomitant]
     Dosage: 10 MG, UNKNOWN
  11. DILTIAZEM [Concomitant]
     Dosage: 240 MG, UNKNOWN
  12. INSULIN [Concomitant]
     Dosage: UNK, UNKNOWN
     Dates: start: 20060921

REACTIONS (7)
  - AORTIC VALVE REPLACEMENT [None]
  - BLOOD GLUCOSE DECREASED [None]
  - BLOOD GLUCOSE INCREASED [None]
  - CARDIAC PACEMAKER INSERTION [None]
  - DIZZINESS [None]
  - HYPERCHLORHYDRIA [None]
  - STAPHYLOCOCCAL INFECTION [None]
